FAERS Safety Report 14031668 (Version 3)
Quarter: 2018Q4

REPORT INFORMATION
  Report Type: Report from Study
  Country: None (occurrence: IL)
  Receive Date: 20171003
  Receipt Date: 20181119
  Transmission Date: 20190204
  Serious: Yes (Hospitalization, Other)
  Sender: FDA-Public Use
  Company Number: IL-ABBVIE-17K-082-2114112-00

PATIENT
  Age: 64 Year
  Sex: Female

DRUGS (3)
  1. HUMIRA [Suspect]
     Active Substance: ADALIMUMAB
     Indication: ANKYLOSING SPONDYLITIS
     Dosage: CHANGED FORMULATION
     Route: 058
     Dates: start: 2017
  2. HUMIRA [Suspect]
     Active Substance: ADALIMUMAB
     Indication: ANKYLOSING SPONDYLITIS
     Route: 058
     Dates: start: 20140101
  3. HUMIRA [Suspect]
     Active Substance: ADALIMUMAB
     Dosage: CHANGED FORMULATION
     Route: 058
     Dates: start: 2015

REACTIONS (16)
  - Contusion [Unknown]
  - Benign breast neoplasm [Unknown]
  - Weight increased [Unknown]
  - Intentional product misuse [Unknown]
  - Squamous cell carcinoma [Not Recovered/Not Resolved]
  - Drug effect incomplete [Unknown]
  - Back pain [Unknown]
  - Post-traumatic pain [Not Recovered/Not Resolved]
  - Paraesthesia [Unknown]
  - Spinal pain [Unknown]
  - Malignant neoplasm of thymus [Recovered/Resolved]
  - Breast cancer female [Recovered/Resolved]
  - Cough [Not Recovered/Not Resolved]
  - Fall [Unknown]
  - Weight decreased [Unknown]
  - Dysstasia [Unknown]

NARRATIVE: CASE EVENT DATE: 2016
